FAERS Safety Report 6853913-5 (Version None)
Quarter: 2010Q3

REPORT INFORMATION
  Report Type: 
  Country: None (occurrence: None)
  Receive Date: 20100717
  Receipt Date: 20071228
  Transmission Date: 20110219
  Serious: No
  Sender: FDA-Public Use
  Company Number: US-PFIZER INC-2007108410

PATIENT
  Age: 39 Year
  Sex: Female
  Weight: 63.5 kg

DRUGS (4)
  1. CHANTIX [Suspect]
  2. XYLOCAINE W/ EPINEPHRINE [Interacting]
     Indication: ANAESTHESIA
     Dates: start: 20071201, end: 20071201
  3. ANAESTHETICS [Interacting]
     Indication: ANAESTHESIA
     Dates: start: 20071201, end: 20071201
  4. VITAMINS [Concomitant]

REACTIONS (2)
  - DRUG EFFECT DECREASED [None]
  - DRUG INTERACTION [None]
